FAERS Safety Report 12884110 (Version 4)
Quarter: 2016Q4

REPORT INFORMATION
  Report Type: Spontaneous
  Country: US (occurrence: US)
  Receive Date: 20161026
  Receipt Date: 20161223
  Transmission Date: 20170207
  Serious: No
  Sender: FDA-Public Use
  Company Number: US-PFIZER INC-2016119575

PATIENT
  Age: 69 Year
  Sex: Female

DRUGS (32)
  1. FLONASE [Concomitant]
     Active Substance: FLUTICASONE PROPIONATE
     Indication: RHINITIS
     Dosage: 100 UG, AS NEEDED (FLONASE) 50 MCG/ACT INSTIL 2 SPRAYS INTO EACH NOSTRIL DAILY)
     Route: 045
     Dates: start: 20150122
  2. TOPROL XL [Concomitant]
     Active Substance: METOPROLOL SUCCINATE
     Dosage: 25 MG, DAILY (TAKE 1 TABLET)
     Route: 048
     Dates: start: 20151228, end: 20160127
  3. LYRICA [Suspect]
     Active Substance: PREGABALIN
     Dosage: 50 MG, UNK (TAKE 50 MG BY MOUTH 2 TIMES)
     Route: 048
  4. XANAX [Concomitant]
     Active Substance: ALPRAZOLAM
     Dosage: 0.5 MG, AS NEEDED (3 TIMES DAILY )
     Route: 048
     Dates: start: 20151115
  5. CYCLOBENZAPRINE HCL [Concomitant]
     Active Substance: CYCLOBENZAPRINE HYDROCHLORIDE
     Indication: MUSCLE SPASMS
     Dosage: 5 MG, EVER 8 HOURS AS NEEDED
     Route: 048
  6. MUCINEX [Concomitant]
     Active Substance: GUAIFENESIN
     Dosage: 1 DF, DAILY AS NEEDED
     Route: 048
     Dates: start: 2000
  7. ANTIVERT [Concomitant]
     Active Substance: MECLIZINE HYDROCHLORIDE
     Indication: DIZZINESS
     Dosage: 25 MG, 1 TABLET EVERY 6 HOURS AS NEEDED
     Route: 048
     Dates: start: 20110726
  8. AUBAGIO [Concomitant]
     Active Substance: TERIFLUNOMIDE
     Dosage: 14 MG, DAILY
     Route: 048
     Dates: start: 2014
  9. METOPROLOL TARTRATE. [Concomitant]
     Active Substance: METOPROLOL TARTRATE
     Dosage: 25 MG, DAILY
     Route: 048
     Dates: start: 2000
  10. CYMBALTA [Concomitant]
     Active Substance: DULOXETINE HYDROCHLORIDE
     Dosage: 60 MG, DAILY
     Route: 048
     Dates: start: 2000
  11. FLONASE [Concomitant]
     Active Substance: FLUTICASONE PROPIONATE
     Indication: HYPERSENSITIVITY
  12. MOBIC [Concomitant]
     Active Substance: MELOXICAM
     Dosage: 15 MG, DAILY
     Route: 048
     Dates: start: 20150928
  13. LYRICA [Suspect]
     Active Substance: PREGABALIN
     Dosage: 75 MG, 2X/DAY
     Route: 048
     Dates: start: 20151110
  14. ZYRTEC [Concomitant]
     Active Substance: CETIRIZINE HYDROCHLORIDE
     Dosage: 10 MG, 1X/DAY (AT BEDTIME)
     Route: 048
  15. CYMBALTA [Concomitant]
     Active Substance: DULOXETINE HYDROCHLORIDE
     Dosage: 60 MG, DAILY
     Route: 048
  16. NUEDEXTA [Concomitant]
     Active Substance: DEXTROMETHORPHAN HYDROBROMIDE\QUINIDINE SULFATE
     Dosage: 1 DF, 2X/DAY (DEXTROMETHORPHAN 20 MG-QUINIDINE 10 MG)
     Route: 048
     Dates: start: 2015
  17. AVAPRO [Concomitant]
     Active Substance: IRBESARTAN
     Dosage: 150 MG, 2X/DAY
     Dates: start: 20150418
  18. PERCOCET [Concomitant]
     Active Substance: ACETAMINOPHEN\OXYCODONE HYDROCHLORIDE
     Indication: PAIN
     Dosage: 1 DF, AS NEEDED (OXYCODONE 5MG- ACETAMINOPHEN 325MG) (TAKE 1 TABLET BY MOUTH EVERY 6 HOURS)
     Route: 048
  19. MELOXICAM. [Concomitant]
     Active Substance: MELOXICAM
     Dosage: 15 MG, 1X/DAY (1 PO HS)
     Route: 048
     Dates: start: 2000
  20. FLUTICASONE PROPIONATE. [Concomitant]
     Active Substance: FLUTICASONE PROPIONATE
     Dosage: 100 UG, 1X/DAY (50 MCG/ACT, 1 SPRAY EA. NOSTRIL HS)
     Route: 045
     Dates: start: 2000
  21. NEXIUM [Concomitant]
     Active Substance: ESOMEPRAZOLE MAGNESIUM
     Dosage: 40 MG, DAILY
     Route: 048
     Dates: start: 2000
  22. IRBESARTAN. [Concomitant]
     Active Substance: IRBESARTAN
     Dosage: 600 MG, DAILY (2 PO DAILY)
     Route: 048
     Dates: start: 2000
  23. OXYCODONE AND ACETAMINOPHEN [Concomitant]
     Active Substance: ACETAMINOPHEN\OXYCODONE HYDROCHLORIDE
     Dosage: 1-2 DF, EVERY 6 HOURS AS NEEDED (OXYCODONE 5MG-ACETAMINOPHEN 325MG, 1-2 Q 6HOURS)
     Dates: start: 2000
  24. LYRICA [Suspect]
     Active Substance: PREGABALIN
     Dosage: 75 MG, 2X/DAY
     Route: 048
     Dates: start: 2016
  25. ZYRTEC [Concomitant]
     Active Substance: CETIRIZINE HYDROCHLORIDE
     Dosage: 10 MG, DAILY
     Route: 048
  26. HYDRODIURIL [Concomitant]
     Active Substance: HYDROCHLOROTHIAZIDE
     Dosage: 25 MG, 1X/DAY (EVERY MORNING)
     Route: 048
  27. ALEVE [Concomitant]
     Active Substance: NAPROXEN SODIUM
     Dosage: 440 MG, 3X/DAY (TAKE 440MG EVERY 8 HOURS)
     Route: 048
  28. ALPRAZOLAM. [Concomitant]
     Active Substance: ALPRAZOLAM
     Dosage: 0.5 MG, 2X/DAY
     Route: 048
     Dates: start: 2000
  29. FLEXERIL [Concomitant]
     Active Substance: CYCLOBENZAPRINE HYDROCHLORIDE
     Indication: MUSCLE SPASMS
     Dosage: 10 MG, 3 TIMES DAILY AS NEEDED
     Route: 048
  30. PRILOSEC [Concomitant]
     Active Substance: OMEPRAZOLE MAGNESIUM
     Dosage: 40 MG, DAILY
     Route: 048
     Dates: start: 20150203
  31. HYDROCHLOROTHIAZIDE. [Concomitant]
     Active Substance: HYDROCHLOROTHIAZIDE
     Dosage: 25 MG, DAILY
     Route: 048
     Dates: start: 2000
  32. SENNA [Concomitant]
     Active Substance: SENNA LEAF\SENNOSIDES\SENNOSIDES A AND B
     Dosage: UNK , DAILY (2-4 PO DAILY)
     Route: 048
     Dates: start: 2000

REACTIONS (2)
  - Paraesthesia [Unknown]
  - Pain in extremity [Unknown]
